FAERS Safety Report 7299259-5 (Version None)
Quarter: 2011Q1

REPORT INFORMATION
  Report Type: 
  Country: None (occurrence: None)
  Receive Date: 20110217
  Receipt Date: 20110211
  Transmission Date: 20110831
  Serious: Yes (Other)
  Sender: FDA-Public Use
  Company Number: US-MERCK-1102USA01532

PATIENT
  Age: 82 Year
  Sex: Male

DRUGS (3)
  1. GLYBURIDE [Concomitant]
     Route: 065
  2. JANUVIA [Suspect]
     Indication: BLOOD GLUCOSE
     Route: 048
     Dates: start: 20100801
  3. DEPAKOTE [Concomitant]
     Route: 065

REACTIONS (3)
  - POLLAKIURIA [None]
  - BLOOD GLUCOSE INCREASED [None]
  - CONVULSION [None]
